FAERS Safety Report 5578459-6 (Version None)
Quarter: 2007Q4

REPORT INFORMATION
  Report Type: 
  Country: None (occurrence: None)
  Receive Date: 20071227
  Receipt Date: 20071211
  Transmission Date: 20080405
  Serious: Yes (Hospitalization, Disabling)
  Sender: FDA-Public Use
  Company Number: SPI200700816

PATIENT
  Age: 46 Year
  Sex: Female
  Weight: 74.8 kg

DRUGS (15)
  1. AMITIZA [Suspect]
     Indication: CONSTIPATION
     Dosage: 24 MCG, BID, ORAL
     Route: 048
     Dates: start: 20070601
  2. PREMARIN [Concomitant]
  3. XANAX [Concomitant]
  4. SYNTHROID [Concomitant]
  5. DEXAMETHASONE TAB [Concomitant]
  6. NEXIUM [Concomitant]
  7. ALBUTEROL [Concomitant]
  8. LYRICA [Concomitant]
  9. LIPITOR [Concomitant]
  10. ADVAIR DISKUS 100/50 [Concomitant]
  11. CLARITIN [Concomitant]
  12. LORTAB [Concomitant]
  13. FLEXERIL [Concomitant]
  14. PAXIL [Concomitant]
  15. NASONEX [Concomitant]

REACTIONS (6)
  - LUNG CANCER METASTATIC [None]
  - METASTASES TO ADRENALS [None]
  - METASTASES TO BONE [None]
  - METASTASES TO CENTRAL NERVOUS SYSTEM [None]
  - METASTASES TO KIDNEY [None]
  - METASTASES TO LYMPH NODES [None]
